FAERS Safety Report 7780637-2 (Version None)
Quarter: 2011Q3

REPORT INFORMATION
  Report Type: 
  Country: None (occurrence: None)
  Receive Date: 20110927
  Receipt Date: 20110119
  Transmission Date: 20111222
  Serious: No
  Sender: FDA-Public Use
  Company Number: US-BRISTOL-MYERS SQUIBB COMPANY-15493323

PATIENT
  Age: 57 Year
  Sex: Male
  Weight: 76 kg

DRUGS (2)
  1. AVALIDE [Suspect]
     Indication: HYPERTENSION
  2. AVAPRO [Suspect]
     Indication: HYPERTENSION
     Dosage: INCREASED TO 300MG AND AGAIN REDUCED TO 150MG

REACTIONS (2)
  - FEELING ABNORMAL [None]
  - BLOOD PRESSURE INCREASED [None]
